FAERS Safety Report 21883835 (Version 1)
Quarter: 2023Q1

REPORT INFORMATION
  Report Type: Report from Study
  Country: US (occurrence: US)
  Receive Date: 20230119
  Receipt Date: 20230119
  Transmission Date: 20230417
  Serious: No
  Sender: FDA-Public Use
  Company Number: US-ABBVIE-4263767

PATIENT
  Age: 40 Year
  Sex: Female

DRUGS (1)
  1. HUMIRA [Suspect]
     Active Substance: ADALIMUMAB
     Indication: Rheumatoid arthritis
     Route: 058
     Dates: start: 20221101

REACTIONS (3)
  - Upper respiratory tract infection [Recovered/Resolved]
  - Arthralgia [Unknown]
  - Blood blister [Unknown]

NARRATIVE: CASE EVENT DATE: 20221126
